FAERS Safety Report 9160702 (Version 1)
Quarter: 2013Q1

REPORT INFORMATION
  Report Type: Spontaneous
  Country: GB (occurrence: None)
  Receive Date: 20130219
  Receipt Date: 20130219
  Transmission Date: 20140127
  Serious: Yes (Other)
  Sender: FDA-Public Use
  Company Number: GB-DEXPHARM-20130029

PATIENT
  Age: 58 Year
  Sex: Female

DRUGS (5)
  1. OMEPRAZOLE [Suspect]
     Indication: PRODUCT USED FOR UNKNOWN INDICATION
     Dosage: 20 MG MILLIGRAM (S) DOSAGES / INTERVAL : 2 IN 1 DAY CUMULATIVE DOSE : 40.0 MG MILLIGRAM (S)
     Dates: start: 20121217
  2. ADCAL-D3 [Concomitant]
  3. DOUBLEBASE [Concomitant]
  4. MACROGOL [Concomitant]
  5. REFRESH OPTIVE [Concomitant]

REACTIONS (5)
  - Diarrhoea [None]
  - Gastrointestinal disorder [None]
  - Malaise [None]
  - Product taste abnormal [None]
  - Nausea [None]
